FAERS Safety Report 14203524 (Version 1)
Quarter: 2017Q4

REPORT INFORMATION
  Report Type: Spontaneous
  Country: BR (occurrence: BR)
  Receive Date: 20171120
  Receipt Date: 20171120
  Transmission Date: 20180321
  Serious: Yes (Other)
  Sender: FDA-Public Use
  Company Number: BR-ROCHE-2021578

PATIENT
  Age: 58 Year
  Sex: Female

DRUGS (3)
  1. CARBOPLATIN. [Suspect]
     Active Substance: CARBOPLATIN
     Indication: OVARIAN CANCER
     Dosage: 6 CYCLES
     Route: 065
     Dates: start: 20120830
  2. PACLITAXEL. [Suspect]
     Active Substance: PACLITAXEL
     Indication: OVARIAN CANCER
     Dosage: 6 CYCLES
     Route: 065
     Dates: start: 20120830
  3. AVASTIN [Suspect]
     Active Substance: BEVACIZUMAB
     Indication: OVARIAN CANCER
     Dosage: 6 CYCLE
     Route: 065
     Dates: start: 20141127

REACTIONS (6)
  - Spleen disorder [Unknown]
  - Nodule [Unknown]
  - Pancreatic neoplasm [Unknown]
  - Lipoma [Unknown]
  - Intestinal mass [Unknown]
  - Retroperitoneal lymphadenopathy [Unknown]
